FAERS Safety Report 9994356 (Version 1)
Quarter: 2014Q1

REPORT INFORMATION
  Report Type: Spontaneous
  Country: JP (occurrence: JP)
  Receive Date: 20140311
  Receipt Date: 20140311
  Transmission Date: 20141002
  Serious: Yes (Other)
  Sender: FDA-Public Use
  Company Number: JP-ROCHE-1359839

PATIENT
  Sex: Female

DRUGS (1)
  1. PERJETA [Suspect]
     Indication: BREAST CANCER RECURRENT
     Dosage: FORM STRENGTH: 420MG/14ML
     Route: 041
     Dates: start: 20131018, end: 20140131

REACTIONS (3)
  - Fracture [Recovering/Resolving]
  - Metastases to lymph nodes [Unknown]
  - Metastases to bone [Unknown]
